FAERS Safety Report 11062189 (Version 1)
Quarter: 2015Q2

REPORT INFORMATION
  Report Type: Report from Study
  Country: AU (occurrence: AU)
  Receive Date: 20150424
  Receipt Date: 20150424
  Transmission Date: 20150821
  Serious: Yes (Hospitalization)
  Sender: FDA-Public Use
  Company Number: AU-ASTRAZENECA-2015SE36805

PATIENT
  Age: 47 Year
  Sex: Female

DRUGS (9)
  1. SERTRALINE [Suspect]
     Active Substance: SERTRALINE HYDROCHLORIDE
     Dosage: 100 MG
     Route: 048
  2. DOXEPIN [Suspect]
     Active Substance: DOXEPIN
     Dosage: 450 MG
     Route: 048
  3. PREDNISONE. [Suspect]
     Active Substance: PREDNISONE
     Route: 048
  4. PARACETAMOL [Suspect]
     Active Substance: ACETAMINOPHEN
     Dosage: 4000 MG
     Route: 048
  5. ASPIRIN. [Suspect]
     Active Substance: ASPIRIN
     Dosage: 1200 MG
     Route: 048
  6. ATENOLOL. [Suspect]
     Active Substance: ATENOLOL
     Dosage: 500 MG
     Route: 048
  7. METFORMIN [Suspect]
     Active Substance: METFORMIN HYDROCHLORIDE
     Dosage: 10 G (NON AZ PRODUCT)
     Route: 048
  8. FELODIPINEEXTENDED-RELEASE TABLETS [Suspect]
     Active Substance: FELODIPINE
     Dosage: 1000 MG
     Route: 048
  9. AZATHIOPRINE. [Suspect]
     Active Substance: AZATHIOPRINE
     Dosage: 500 MG
     Route: 048

REACTIONS (2)
  - Bradycardia [Unknown]
  - Intentional overdose [Unknown]
